FAERS Safety Report 5516882-6 (Version None)
Quarter: 2007Q4

REPORT INFORMATION
  Report Type: 
  Country: None (occurrence: None)
  Receive Date: 20071114
  Receipt Date: 20071106
  Transmission Date: 20080405
  Serious: Yes (Hospitalization)
  Sender: FDA-Public Use
  Company Number: B0495249A

PATIENT
  Age: 33 Year
  Sex: Male

DRUGS (3)
  1. PANODIL TABLETS [Suspect]
     Route: 048
     Dates: start: 20070101, end: 20070701
  2. SALAZOPYRIN [Suspect]
     Route: 048
     Dates: start: 20070501, end: 20070702
  3. CITODON [Suspect]
     Route: 048
     Dates: start: 20070101, end: 20070701

REACTIONS (3)
  - BLOOD ALKALINE PHOSPHATASE ABNORMAL [None]
  - SACROILIITIS [None]
  - TRANSAMINASES INCREASED [None]
